FAERS Safety Report 6312211-9 (Version None)
Quarter: 2009Q3

REPORT INFORMATION
  Report Type: 
  Country: None (occurrence: None)
  Receive Date: 20090817
  Receipt Date: 20090807
  Transmission Date: 20100115
  Serious: Yes (Other)
  Sender: FDA-Public Use
  Company Number: US-PFIZER INC-2008081080

PATIENT
  Sex: Female
  Weight: 57 kg

DRUGS (3)
  1. LIPITOR [Suspect]
     Indication: BLOOD CHOLESTEROL INCREASED
     Dosage: 10 MG, 1X/DAY, EVERYDAY
     Dates: start: 20041130
  2. HYZAAR [Concomitant]
     Indication: HYPERTENSION
  3. COZAAR [Concomitant]
     Indication: HYPERTENSION

REACTIONS (4)
  - BLOOD CHOLESTEROL INCREASED [None]
  - MYALGIA [None]
  - PAIN [None]
  - RENAL ADENOMA [None]
